FAERS Safety Report 6159362-X (Version None)
Quarter: 2009Q2

REPORT INFORMATION
  Report Type: 
  Country: None (occurrence: None)
  Receive Date: 20090417
  Receipt Date: 20090407
  Transmission Date: 20091009
  Serious: Yes (Hospitalization, Other)
  Sender: FDA-Public Use
  Company Number: CA-NOVOPROD-286203

PATIENT
  Age: 5 Year
  Sex: Male

DRUGS (2)
  1. NOVOLIN GE NPH PENFILL [Suspect]
     Indication: TYPE 1 DIABETES MELLITUS
     Dates: start: 20090310
  2. NOVOLIN GE TORONTO PENFIL [Suspect]
     Indication: TYPE 1 DIABETES MELLITUS
     Dates: start: 20090310

REACTIONS (3)
  - ECZEMA [None]
  - RASH [None]
  - VIRAL INFECTION [None]
